FAERS Safety Report 24086575 (Version 2)
Quarter: 2024Q3

REPORT INFORMATION
  Report Type: Spontaneous
  Country: US (occurrence: US)
  Receive Date: 20240713
  Receipt Date: 20240909
  Transmission Date: 20241017
  Serious: No
  Sender: ABBVIE
  Company Number: US-ABBVIE-5832210

PATIENT
  Sex: Female
  Weight: 47 kg

DRUGS (8)
  1. LATISSE [Suspect]
     Active Substance: BIMATOPROST
     Indication: Growth of eyelashes
     Route: 061
     Dates: start: 202406, end: 20240703
  2. LATISSE [Suspect]
     Active Substance: BIMATOPROST
     Indication: Madarosis
     Route: 061
     Dates: start: 2015, end: 2016
  3. LATISSE [Suspect]
     Active Substance: BIMATOPROST
     Route: 061
     Dates: start: 2020, end: 2021
  4. BOTOX [Suspect]
     Active Substance: ONABOTULINUMTOXINA
     Indication: Hypertonic bladder
     Dosage: TIME INTERVAL: AS NECESSARY: EVERY FOUR MONTHS
     Route: 065
     Dates: start: 2024, end: 2024
  5. BOTOX [Suspect]
     Active Substance: ONABOTULINUMTOXINA
     Indication: Hypertonic bladder
     Dosage: TIME INTERVAL: AS NECESSARY
     Route: 065
     Dates: start: 2012, end: 2012
  6. BOTOX [Suspect]
     Active Substance: ONABOTULINUMTOXINA
     Indication: Hypertonic bladder
     Dosage: TIME INTERVAL: AS NECESSARY: EVERY THREE MONTHS
     Route: 065
     Dates: start: 2015, end: 2015
  7. BOTOX [Suspect]
     Active Substance: ONABOTULINUMTOXINA
     Indication: Hypertonic bladder
     Dosage: TIME INTERVAL: AS NECESSARY: EVERY FOUR MONTHS, STOP DATE: ONGOING
     Route: 065
  8. TRETINOIN [Concomitant]
     Active Substance: TRETINOIN
     Indication: Skin disorder prophylaxis

REACTIONS (19)
  - Hypotrichosis [Recovered/Resolved]
  - Skin wrinkling [Not Recovered/Not Resolved]
  - Growth of eyelashes [Not Recovered/Not Resolved]
  - Erythema [Not Recovered/Not Resolved]
  - Periorbital swelling [Recovered/Resolved]
  - Madarosis [Recovered/Resolved]
  - Eyelid ptosis [Not Recovered/Not Resolved]
  - Eye swelling [Recovered/Resolved]
  - Hypotrichosis [Recovered/Resolved]
  - Eye disorder [Not Recovered/Not Resolved]
  - Dark circles under eyes [Not Recovered/Not Resolved]
  - Eye pruritus [Recovered/Resolved]
  - Drug hypersensitivity [Not Recovered/Not Resolved]
  - Mephisto sign [Unknown]
  - Eye disorder [Not Recovered/Not Resolved]
  - Ocular discomfort [Recovered/Resolved]
  - Lacrimation increased [Recovered/Resolved]
  - Iris discolouration [Not Recovered/Not Resolved]
  - Madarosis [Recovered/Resolved]

NARRATIVE: CASE EVENT DATE: 20150101
